FAERS Safety Report 16720149 (Version 1)
Quarter: 2019Q3

REPORT INFORMATION
  Report Type: Spontaneous
  Country: CA (occurrence: CA)
  Receive Date: 20190820
  Receipt Date: 20190820
  Transmission Date: 20191005
  Serious: Yes (Other)
  Sender: FDA-Public Use
  Company Number: CA-ROCHE-2143899

PATIENT
  Sex: Female

DRUGS (12)
  1. RITUXAN [Suspect]
     Active Substance: RITUXIMAB
     Indication: RHEUMATOID ARTHRITIS
     Route: 042
     Dates: start: 20190423
  2. SULFAPRIM [Concomitant]
  3. PANTOPRAZOLE [Concomitant]
     Active Substance: PANTOPRAZOLE
  4. ZOPICLONE [Concomitant]
     Active Substance: ZOPICLONE
  5. RIVASA [Concomitant]
     Active Substance: ASPIRIN
  6. ABILIFY [Concomitant]
     Active Substance: ARIPIPRAZOLE
  7. DOMPERIDONE [Concomitant]
     Active Substance: DOMPERIDONE
  8. CITALOPRAM [Concomitant]
     Active Substance: CITALOPRAM HYDROBROMIDE
  9. LASIX [Concomitant]
     Active Substance: FUROSEMIDE
  10. PREDNISONE. [Concomitant]
     Active Substance: PREDNISONE
  11. URSODIOL. [Concomitant]
     Active Substance: URSODIOL
  12. CELLCEPT [Suspect]
     Active Substance: MYCOPHENOLATE MOFETIL\MYCOPHENOLATE MOFETIL HYDROCHLORIDE
     Indication: PRODUCT USED FOR UNKNOWN INDICATION
     Route: 065

REACTIONS (6)
  - Metastases to lymph nodes [Unknown]
  - Thyroid cancer [Unknown]
  - Joint swelling [Unknown]
  - Arthralgia [Unknown]
  - Bronchiolitis [Unknown]
  - Lung neoplasm malignant [Unknown]
